FAERS Safety Report 8167216-2 (Version None)
Quarter: 2012Q1

REPORT INFORMATION
  Report Type: 
  Country: None (occurrence: None)
  Receive Date: 20120227
  Receipt Date: 20120222
  Transmission Date: 20120608
  Serious: No
  Sender: FDA-Public Use
  Company Number: US-TEVA-324236USA

PATIENT
  Sex: Female
  Weight: 97.61 kg

DRUGS (4)
  1. PLAN B ONE-STEP [Suspect]
     Indication: POST COITAL CONTRACEPTION
     Dosage: 1.5 MILLIGRAM;
     Route: 048
     Dates: start: 20120130, end: 20120130
  2. ABILIFY [Concomitant]
     Indication: DEPRESSION
  3. PROZAC [Concomitant]
     Indication: DEPRESSION
  4. LOESTRIN FE 1/20 [Concomitant]
     Indication: CONTRACEPTION
     Dates: start: 20120115

REACTIONS (7)
  - MENSTRUATION IRREGULAR [None]
  - INFLUENZA [None]
  - VOMITING [None]
  - DIZZINESS [None]
  - NAUSEA [None]
  - DYSMENORRHOEA [None]
  - MENSTRUATION DELAYED [None]
